FAERS Safety Report 8815163 (Version 1)
Quarter: 2012Q4

REPORT INFORMATION
  Report Type: 
  Country: FR (occurrence: FR)
  Receive Date: 20120928
  Receipt Date: 20120928
  Transmission Date: 20130627
  Serious: Yes (Other)
  Sender: FDA-Public Use
  Company Number: FR-ELI_LILLY_AND_COMPANY-FR201209005625

PATIENT
  Sex: Male

DRUGS (1)
  1. FORSTEO [Suspect]

REACTIONS (2)
  - Cachexia [Unknown]
  - Asthenia [Unknown]
